FAERS Safety Report 7244267-3 (Version None)
Quarter: 2011Q1

REPORT INFORMATION
  Report Type: 
  Country: None (occurrence: None)
  Receive Date: 20110125
  Receipt Date: 20110121
  Transmission Date: 20110831
  Serious: Yes (Death, Hospitalization, Other)
  Sender: FDA-Public Use
  Company Number: DK-ABBOTT-10P-044-0642743-00

PATIENT
  Sex: Female

DRUGS (3)
  1. METHOTREXATE [Concomitant]
     Indication: RHEUMATOID ARTHRITIS
     Route: 048
     Dates: start: 20090904, end: 20100325
  2. HUMIRA [Suspect]
     Indication: RHEUMATOID ARTHRITIS
     Route: 058
     Dates: start: 20090904, end: 20100325
  3. AMILORIDE HCL AND HYDROCHLOROTHIAZIDE [Concomitant]
     Indication: DIURETIC THERAPY
     Dates: start: 20090930

REACTIONS (3)
  - SMALL CELL LUNG CANCER STAGE UNSPECIFIED [None]
  - METASTASES TO LIVER [None]
  - METASTASES TO LYMPH NODES [None]
